FAERS Safety Report 6847325-8 (Version None)
Quarter: 2010Q3

REPORT INFORMATION
  Report Type: 
  Country: None (occurrence: None)
  Receive Date: 20100716
  Receipt Date: 20100707
  Transmission Date: 20110219
  Serious: Yes (Other)
  Sender: FDA-Public Use
  Company Number: US-EISAI INC.-E3810-03942-SPO-US

PATIENT
  Sex: Female
  Weight: 68 kg

DRUGS (4)
  1. ACIPHEX [Suspect]
     Indication: GASTRITIS
     Route: 048
     Dates: start: 20100101
  2. ACIPHEX [Suspect]
     Route: 048
     Dates: start: 20081101, end: 20090101
  3. VITAMIN D [Concomitant]
  4. PREMARIN [Concomitant]

REACTIONS (3)
  - BONE DENSITY DECREASED [None]
  - DRUG INEFFECTIVE [None]
  - LYMPHOCYTE COUNT INCREASED [None]
